FAERS Safety Report 6126907-5 (Version None)
Quarter: 2009Q1

REPORT INFORMATION
  Report Type: 
  Country: None (occurrence: None)
  Receive Date: 20090320
  Receipt Date: 20081205
  Transmission Date: 20090719
  Serious: No
  Sender: FDA-Public Use
  Company Number: US-ABBOTT-08P-163-0491583-00

PATIENT
  Sex: Female

DRUGS (1)
  1. ERYTHROMYCIN BASE [Suspect]
     Indication: UPPER RESPIRATORY TRACT INFECTION
     Dates: start: 19980101, end: 19980101

REACTIONS (3)
  - NAUSEA [None]
  - RASH [None]
  - VOMITING [None]
